FAERS Safety Report 23445003 (Version 2)
Quarter: 2025Q2

REPORT INFORMATION
  Report Type: Spontaneous
  Country: US (occurrence: US)
  Receive Date: 20240125
  Receipt Date: 20250623
  Transmission Date: 20250716
  Serious: Yes (Hospitalization)
  Sender: BIOGEN
  Company Number: US-BIOGEN-2024BI01246492

PATIENT
  Sex: Female

DRUGS (1)
  1. TYSABRI [Suspect]
     Active Substance: NATALIZUMAB
     Indication: Multiple sclerosis
     Route: 050
     Dates: start: 20221019

REACTIONS (13)
  - Pain in extremity [Unknown]
  - Chest pain [Unknown]
  - Costochondritis [Unknown]
  - Mass [Unknown]
  - Cardiac disorder [Unknown]
  - Neck mass [Unknown]
  - Weight increased [Unknown]
  - Lipohypertrophy [Unknown]
  - Pharyngeal mass [Unknown]
  - Benign breast neoplasm [Unknown]
  - Muscular weakness [Unknown]
  - Dyspnoea [Unknown]
  - Anxiety [Unknown]
